FAERS Safety Report 8314010-5 (Version None)
Quarter: 2012Q2

REPORT INFORMATION
  Report Type: 
  Country: None (occurrence: None)
  Receive Date: 20120426
  Receipt Date: 20110808
  Transmission Date: 20120825
  Serious: Yes (Other)
  Sender: FDA-Public Use
  Company Number: US-TEVA-US022556

PATIENT
  Sex: Male
  Weight: 61 kg

DRUGS (4)
  1. ZYPREXA [Concomitant]
     Indication: BIPOLAR DISORDER
     Dosage: 40 MILLIGRAM;
     Route: 048
     Dates: start: 20070801
  2. PROVIGIL [Suspect]
     Indication: SEDATION
     Route: 048
     Dates: start: 20071101
  3. DEPAKOTE [Concomitant]
     Indication: BIPOLAR DISORDER
     Dosage: 500 MILLIGRAM;
     Route: 048
  4. LEXAPRO [Concomitant]
     Indication: BIPOLAR DISORDER
     Dosage: 10 MILLIGRAM;
     Route: 048

REACTIONS (2)
  - THINKING ABNORMAL [None]
  - HALLUCINATION, AUDITORY [None]
